FAERS Safety Report 19886857 (Version 1)
Quarter: 2021Q3

REPORT INFORMATION
  Report Type: Report from Study
  Country: NL (occurrence: NL)
  Receive Date: 20210928
  Receipt Date: 20210928
  Transmission Date: 20211014
  Serious: Yes (Hospitalization, Disabling, Other)
  Sender: FDA-Public Use
  Company Number: NL-SA-2019SA344186

PATIENT
  Age: 47 Year
  Sex: Female

DRUGS (14)
  1. BISOPROLOL [Concomitant]
     Active Substance: BISOPROLOL
     Dosage: 2.5 MG
  2. TERIFLUNOMIDE. [Suspect]
     Active Substance: TERIFLUNOMIDE
     Indication: RELAPSING-REMITTING MULTIPLE SCLEROSIS
     Dosage: 14 MG, QD
     Route: 048
     Dates: start: 20180319
  3. BACLOFEN. [Concomitant]
     Active Substance: BACLOFEN
     Dosage: 10 MG
  4. RAMIPRIL. [Concomitant]
     Active Substance: RAMIPRIL
  5. TOLTERODINE [Concomitant]
     Active Substance: TOLTERODINE
  6. SPIRONOLACTONE. [Concomitant]
     Active Substance: SPIRONOLACTONE
     Dosage: 25 MG
  7. DIAZEPAM. [Concomitant]
     Active Substance: DIAZEPAM
     Dosage: 10 MG
  8. HYDROXOCOBALAM [Concomitant]
  9. CITALOPRAM [Concomitant]
     Active Substance: CITALOPRAM HYDROBROMIDE
     Dosage: 20 MG
  10. QVAR [Concomitant]
     Active Substance: BECLOMETHASONE DIPROPIONATE
  11. ETHINYLESTRADIOL/LEVONORGESTREL [Concomitant]
     Active Substance: ETHINYL ESTRADIOL\LEVONORGESTREL
  12. THYRAX [LEVOTHYROXINE] [Concomitant]
     Dosage: 0.1 MG
  13. SPIRIVA [Concomitant]
     Active Substance: TIOTROPIUM BROMIDE MONOHYDRATE
  14. SANDOMIGRAN [Concomitant]
     Active Substance: PIZOTYLINE
     Dosage: 0.5 MG

REACTIONS (13)
  - Respiratory tract congestion [Recovering/Resolving]
  - Fatigue [Not Recovered/Not Resolved]
  - Scar [Recovering/Resolving]
  - Pleural effusion [Recovering/Resolving]
  - Bone disorder [Unknown]
  - Limb injury [Unknown]
  - Pain [Unknown]
  - Fluid retention [Not Recovered/Not Resolved]
  - Procedural pain [Recovering/Resolving]
  - Fall [Unknown]
  - Heart valve incompetence [Not Recovered/Not Resolved]
  - Basedow^s disease [Unknown]
  - Memory impairment [Unknown]
